FAERS Safety Report 9727452 (Version 1)
Quarter: 2013Q4

REPORT INFORMATION
  Report Type: Spontaneous
  Country: IT (occurrence: None)
  Receive Date: 20131127
  Receipt Date: 20131127
  Transmission Date: 20140711
  Serious: Yes (Death, Hospitalization, Disabling)
  Sender: FDA-Public Use
  Company Number: IT-ALKEM-000233

PATIENT
  Age: 70 Year
  Sex: Female
  Weight: 117 kg

DRUGS (6)
  1. METFORMIN [Suspect]
     Indication: TYPE 2 DIABETES MELLITUS
  2. HEPARIN (HEPARIN) [Concomitant]
  3. CETRIZINE (CETRIZINE) [Concomitant]
  4. IREBSARTAN  (IREBESARTAN) [Concomitant]
  5. INSULIN (INSULIN) [Concomitant]
  6. FUROSEMIDE (FUROSEMIDE) [Concomitant]

REACTIONS (22)
  - Chest pain [None]
  - Circulatory collapse [None]
  - Lactic acidosis [None]
  - Toxicity to various agents [None]
  - Blood glucose increased [None]
  - Pruritus [None]
  - Hypophagia [None]
  - Decreased appetite [None]
  - Agitation [None]
  - Loss of consciousness [None]
  - Metabolic acidosis [None]
  - Renal impairment [None]
  - Contusion [None]
  - Excoriation [None]
  - Abdominal pain [None]
  - Face oedema [None]
  - Rib fracture [None]
  - Pulmonary congestion [None]
  - Pulmonary oedema [None]
  - Emphysema [None]
  - Atelectasis [None]
  - Intercapillary glomerulosclerosis [None]
